FAERS Safety Report 5324105-6 (Version None)
Quarter: 2007Q2

REPORT INFORMATION
  Report Type: 
  Country: None (occurrence: None)
  Receive Date: 20070514
  Receipt Date: 20060508
  Transmission Date: 20071010
  Serious: No
  Sender: FDA-Public Use
  Company Number: A0604692A

PATIENT
  Sex: Male

DRUGS (4)
  1. NABUMETONE [Suspect]
     Indication: NECK PAIN
     Dosage: 500MG THREE TIMES PER DAY
     Route: 048
     Dates: start: 20050101
  2. PAROXETINE [Suspect]
  3. TYLENOL [Concomitant]
  4. PAROXETINE [Concomitant]

REACTIONS (1)
  - GASTROINTESTINAL DISORDER [None]
